FAERS Safety Report 4569176-X (Version None)
Quarter: 2005Q1

REPORT INFORMATION
  Report Type: 
  Country: None (occurrence: None)
  Receive Date: 20050203
  Receipt Date: 20050125
  Transmission Date: 20050727
  Serious: Yes (Other)
  Sender: FDA-Public Use
  Company Number: DE-JNJFOC-20050106368

PATIENT
  Age: 90 Year
  Sex: Female

DRUGS (2)
  1. DURAGESIC [Suspect]
     Dosage: RECEIVES DUROGESIC SMAT 25 UG/HR IN COMBINATION WITH ANOTHER ANALGESIC
     Route: 062
  2. DURAGESIC [Suspect]
     Indication: PAIN
     Route: 062

REACTIONS (1)
  - CHEYNE-STOKES RESPIRATION [None]
